FAERS Safety Report 11587664 (Version 2)
Quarter: 2015Q4

REPORT INFORMATION
  Report Type: Spontaneous
  Country: PT (occurrence: PT)
  Receive Date: 20151001
  Receipt Date: 20151009
  Transmission Date: 20160304
  Serious: Yes (Life-Threatening, Hospitalization, Other)
  Sender: FDA-Public Use
  Company Number: PT-009507513-1509PRT013837

PATIENT
  Age: 90 Year
  Sex: Male

DRUGS (2)
  1. INVANZ [Suspect]
     Active Substance: ERTAPENEM SODIUM
     Indication: SOFT TISSUE INFECTION
     Dosage: 1 G/DAY
     Dates: start: 201508, end: 201508
  2. INVANZ [Suspect]
     Active Substance: ERTAPENEM SODIUM
     Indication: SKIN INFECTION

REACTIONS (3)
  - Hallucination [Recovered/Resolved]
  - Seizure [Recovered/Resolved]
  - Coma [Recovered/Resolved]

NARRATIVE: CASE EVENT DATE: 201508
